FAERS Safety Report 7938480-7 (Version None)
Quarter: 2011Q4

REPORT INFORMATION
  Report Type: 
  Country: None (occurrence: None)
  Receive Date: 20111123
  Receipt Date: 20111118
  Transmission Date: 20120403
  Serious: Yes (Hospitalization)
  Sender: FDA-Public Use
  Company Number: US-ABBOTT-11P-163-0876577-00

PATIENT
  Sex: Male
  Weight: 85.806 kg

DRUGS (1)
  1. HUMIRA [Suspect]
     Indication: PSORIATIC ARTHROPATHY
     Dates: start: 20101124, end: 20111113

REACTIONS (5)
  - COLD SWEAT [None]
  - TRANSIENT ISCHAEMIC ATTACK [None]
  - PALLOR [None]
  - MUSCULAR WEAKNESS [None]
  - PARAESTHESIA [None]
